FAERS Safety Report 7041432-5 (Version None)
Quarter: 2010Q4

REPORT INFORMATION
  Report Type: 
  Country: None (occurrence: None)
  Receive Date: 20101013
  Receipt Date: 20101007
  Transmission Date: 20110411
  Serious: Yes (Life-Threatening, Other)
  Sender: FDA-Public Use
  Company Number: JP-ROCHE-721313

PATIENT
  Sex: Female
  Weight: 40 kg

DRUGS (11)
  1. AVASTIN [Suspect]
     Indication: RECTAL CANCER METASTATIC
     Route: 041
     Dates: start: 20090508, end: 20100726
  2. AVASTIN [Suspect]
     Route: 041
     Dates: start: 20100802, end: 20100802
  3. DECADRON [Suspect]
     Indication: NAUSEA
     Dosage: THREE DAYS AT CHEMOTHERAPY, ALSO INDICATED IN PHYSICAL DECONDITIONING/ASTHENIA
     Route: 048
     Dates: start: 20090512, end: 20100203
  4. DECADRON [Suspect]
     Dosage: THREE DAYS AT CHEMOTHERAPY
     Route: 048
     Dates: start: 20100216, end: 20100616
  5. DECADRON [Suspect]
     Route: 048
     Dates: start: 20100618, end: 20100806
  6. LOXONIN [Suspect]
     Indication: PAIN
     Dosage: TAKEN FOR PAIN
     Route: 048
     Dates: start: 20100607, end: 20100806
  7. FLUOROURACIL [Concomitant]
     Dosage: DOSAGE WERE UNCERTAIN
     Route: 040
  8. LEUCOVORIN CALCIUM [Concomitant]
     Dosage: DOSAGE WERE UNCERTAIN
     Route: 041
  9. IRINOTECAN HYDROCHLORIDE [Concomitant]
     Dosage: DOSAGE WERE UNCERTAIN
     Route: 041
  10. FAMOTIDINE [Concomitant]
     Dosage: DOSAGE FORM: UNCERTAINTY
     Route: 065
     Dates: start: 20100429, end: 20100806
  11. PROMAC [Concomitant]
     Dosage: DOSAGE FORM; PERORAL AGENT
     Route: 048
     Dates: start: 20091102, end: 20100806

REACTIONS (5)
  - ASTHENIA [None]
  - DUODENAL PERFORATION [None]
  - NAUSEA [None]
  - PAIN [None]
  - PEPTIC ULCER [None]
